FAERS Safety Report 26160901 (Version 2)
Quarter: 2025Q4

REPORT INFORMATION
  Report Type: Spontaneous
  Country: EU (occurrence: EU)
  Receive Date: 20251216
  Receipt Date: 20251219
  Transmission Date: 20260118
  Serious: Yes (Hospitalization, Other)
  Sender: ROCHE
  Company Number: EU-ROCHE-10000453711

PATIENT
  Age: 26 Year
  Sex: Female
  Weight: 60 kg

DRUGS (1)
  1. OCRELIZUMAB [Suspect]
     Active Substance: OCRELIZUMAB
     Indication: Multiple sclerosis
     Dosage: LAST DOSE OF OCRELIZUMAB IN OCT/2024

REACTIONS (10)
  - Diarrhoea [Unknown]
  - Retrognathia [Unknown]
  - Photosensitivity reaction [Unknown]
  - Colitis [Unknown]
  - Intestinal perforation [Unknown]
  - Peritonitis [Unknown]
  - Inflammatory bowel disease [Unknown]
  - Abdominal abscess [Unknown]
  - Intestinal fistula [Unknown]
  - Dental operation [Unknown]

NARRATIVE: CASE EVENT DATE: 20250401
